FAERS Safety Report 5296219-0 (Version None)
Quarter: 2007Q2

REPORT INFORMATION
  Report Type: 
  Country: None (occurrence: None)
  Receive Date: 20070413
  Receipt Date: 20070412
  Transmission Date: 20071010
  Serious: Yes (Death, Hospitalization, Other)
  Sender: FDA-Public Use
  Company Number: GB-GLAXOSMITHKLINE-B0465311A

PATIENT
  Age: 67 Year
  Sex: Female

DRUGS (1)
  1. ACYCLOVIR [Suspect]
     Dosage: 200MG FIVE TIMES PER DAY
     Route: 065

REACTIONS (4)
  - CEREBELLAR HAEMATOMA [None]
  - GAIT DISTURBANCE [None]
  - SOMNOLENCE [None]
  - VIITH NERVE PARALYSIS [None]
